FAERS Safety Report 14273974 (Version 1)
Quarter: 2017Q4

REPORT INFORMATION
  Report Type: Spontaneous
  Country: IT (occurrence: IT)
  Receive Date: 20171211
  Receipt Date: 20171211
  Transmission Date: 20180321
  Serious: Yes (Hospitalization, Other)
  Sender: FDA-Public Use
  Company Number: IT-OTSUKA-DJ20082398

PATIENT
  Age: 64 Year
  Sex: Female

DRUGS (3)
  1. DELORAZEPAM [Concomitant]
     Active Substance: DELORAZEPAM
     Indication: ANXIETY
     Dosage: UNK
     Route: 065
     Dates: start: 20080628, end: 20080714
  2. ABILIFY [Suspect]
     Active Substance: ARIPIPRAZOLE
     Indication: PSYCHOMOTOR HYPERACTIVITY
     Dosage: 1 DF, UNK
     Route: 048
     Dates: start: 20080702, end: 20080714
  3. HALOPERIDOL. [Concomitant]
     Active Substance: HALOPERIDOL
     Indication: SCHIZOPHRENIA
     Dosage: 4.5 MG, UNK
     Route: 065
     Dates: start: 20080628, end: 20080714

REACTIONS (9)
  - Confusional state [Recovered/Resolved with Sequelae]
  - Dyspnoea [Recovered/Resolved with Sequelae]
  - Blood creatinine increased [Unknown]
  - Myoglobin blood increased [Unknown]
  - White blood cell count increased [Unknown]
  - Atrial fibrillation [Recovered/Resolved with Sequelae]
  - Fibrin D dimer increased [Unknown]
  - Blood glucose increased [Unknown]
  - Blood creatine phosphokinase increased [Unknown]

NARRATIVE: CASE EVENT DATE: 20080714
